FAERS Safety Report 6963766 (Version 2)
Quarter: 2020Q3

REPORT INFORMATION
  Report Type: Report from Study
  Country: US (occurrence: US)
  Receive Date: 20090408
  Receipt Date: 20090526
  Transmission Date: 20201104
  Serious: Yes (Death)
  Sender: FDA-Public Use
  Company Number: US-ROCHE-624184

PATIENT
  Age: 92 Year
  Sex: Female

DRUGS (1)
  1. IBANDRONIC ACID. [Suspect]
     Active Substance: IBANDRONIC ACID
     Indication: PRODUCT USED FOR UNKNOWN INDICATION
     Route: 065
     Dates: start: 2008

REACTIONS (5)
  - Failure to thrive [Fatal]
  - Urinary tract infection [Fatal]
  - Atrial fibrillation [Fatal]
  - Dementia Alzheimer^s type [Fatal]
  - Acute kidney injury [Fatal]
